FAERS Safety Report 23175288 (Version 1)
Quarter: 2023Q4

REPORT INFORMATION
  Report Type: Spontaneous
  Country: CN (occurrence: CN)
  Receive Date: 20231113
  Receipt Date: 20231113
  Transmission Date: 20240110
  Serious: Yes (Other)
  Sender: FDA-Public Use
  Company Number: None

PATIENT
  Age: 10 Year
  Sex: Male

DRUGS (7)
  1. IFOSFAMIDE [Suspect]
     Active Substance: IFOSFAMIDE
     Indication: Neoplasm malignant
     Dosage: 1.6 G, ONE TIME IN ONE DAY, DILUTED WITH 250 ML OF SODIUM CHLORIDE
     Route: 041
     Dates: start: 20230512, end: 20230512
  2. SODIUM CHLORIDE [Suspect]
     Active Substance: SODIUM CHLORIDE
     Indication: Medication dilution
     Dosage: 250 ML, ONE TIME IN ONE DAY, USED TO DILUTE 1.6 G OF IFOSFAMIDE
     Route: 041
     Dates: start: 20230512, end: 20230512
  3. SODIUM CHLORIDE [Suspect]
     Active Substance: SODIUM CHLORIDE
     Dosage: 500 ML, ONE TIME IN ONE DAY, USED TO DILUTE 110 G OF ETOPOSIDE
     Route: 041
     Dates: start: 20230512, end: 20230514
  4. DEXTROSE MONOHYDRATE [Suspect]
     Active Substance: DEXTROSE MONOHYDRATE
     Indication: Medication dilution
     Dosage: 250 ML, ONE TIME IN ONE DAY, DOSAGE FORM: INJECTION, USED TO DILUTE 490 MG OF CARBOPLATIN
     Route: 041
     Dates: start: 20230512, end: 20230512
  5. ETOPOSIDE [Suspect]
     Active Substance: ETOPOSIDE
     Indication: Neoplasm malignant
     Dosage: 110 MG, ONE TIME IN ONE DAY, DILUTED WITH 500 ML OF SODIUM CHLORIDE
     Route: 041
     Dates: start: 20230512, end: 20230514
  6. CARBOPLATIN [Suspect]
     Active Substance: CARBOPLATIN
     Indication: Neoplasm malignant
     Dosage: 490 MG, ONE TIME IN ONE DAY, DILUTED WITH 250 ML OF GLUCOSE
     Route: 041
     Dates: start: 20230512, end: 20230512
  7. PALONOSETRON [Suspect]
     Active Substance: PALONOSETRON
     Indication: Prophylaxis of nausea and vomiting
     Dosage: 0.25 MG, QD, ROUTE: INTRAVENOUS PUSH, BEFORE CHEMOTHERAPY
     Route: 050
     Dates: start: 20230512

REACTIONS (3)
  - Gastrointestinal disorder [Recovering/Resolving]
  - Vomiting [Recovering/Resolving]
  - Nausea [Recovering/Resolving]

NARRATIVE: CASE EVENT DATE: 20230513
